FAERS Safety Report 5704377-6 (Version None)
Quarter: 2008Q2

REPORT INFORMATION
  Report Type: 
  Country: None (occurrence: None)
  Receive Date: 20080411
  Receipt Date: 20080411
  Transmission Date: 20081010
  Serious: No
  Sender: FDA-Public Use
  Company Number: None

PATIENT
  Age: 37 Year
  Sex: Female
  Weight: 52.6 kg

DRUGS (2)
  1. HYDROXYCHLOROQUINE SULFATE [Suspect]
     Indication: SYSTEMIC LUPUS ERYTHEMATOSUS
     Dosage: 200MG QDAY PO EARLY 8/07 TO 8/07 MIDMONTH
     Route: 048
     Dates: start: 20070301, end: 20070401
  2. HYDROXYCHLOROQUINE SULFATE [Suspect]
     Indication: SYSTEMIC LUPUS ERYTHEMATOSUS
     Dosage: 200MG QDAY PO EARLY 8/07 TO 8/07 MIDMONTH
     Route: 048
     Dates: start: 20070801, end: 20070801

REACTIONS (5)
  - ABDOMINAL PAIN [None]
  - DRUG ERUPTION [None]
  - HEADACHE [None]
  - NAUSEA [None]
  - TINNITUS [None]
